FAERS Safety Report 5591416-9 (Version None)
Quarter: 2008Q1

REPORT INFORMATION
  Report Type: 
  Country: None (occurrence: None)
  Receive Date: 20080115
  Receipt Date: 20080103
  Transmission Date: 20080703
  Serious: Yes (Other)
  Sender: FDA-Public Use
  Company Number: KR-TYCO HEALTHCARE/MALLINCKRODT-T200800010

PATIENT

DRUGS (5)
  1. HEXABRIX [Suspect]
     Indication: ANGIOGRAM
     Dosage: 20 ML, SINGLE
     Route: 013
     Dates: start: 20071221, end: 20071221
  2. DILATREND [Concomitant]
     Route: 048
  3. NORVASC                            /00972401/ [Concomitant]
  4. SIGMART [Concomitant]
  5. ASPIRIN [Concomitant]

REACTIONS (3)
  - HYPOTENSION [None]
  - URTICARIA [None]
  - VOMITING [None]
